FAERS Safety Report 9187584 (Version 1)
Quarter: 2013Q1

REPORT INFORMATION
  Report Type: Report from Study
  Country: JP (occurrence: JP)
  Receive Date: 20130325
  Receipt Date: 20130325
  Transmission Date: 20140127
  Serious: Yes (Hospitalization)
  Sender: FDA-Public Use
  Company Number: JP-SHIRE-ALL1-2013-01743

PATIENT
  Age: 70 Year
  Sex: Female

DRUGS (17)
  1. 405 (LANTHANUM CARBONATE) [Suspect]
     Indication: HYPERPHOSPHATAEMIA
     Dosage: 750 MG, UNKNOWN
     Route: 048
     Dates: start: 20100413, end: 20110228
  2. OXAROL [Concomitant]
     Indication: HYPERPARATHYROIDISM SECONDARY
     Dosage: 7.5 ?G, 1X/WEEK
     Route: 042
     Dates: start: 20100413
  3. REGPARA [Concomitant]
     Indication: HYPERPARATHYROIDISM SECONDARY
     Dosage: 25 MG, UNKNOWN
     Route: 048
     Dates: start: 20100412
  4. KINEDAK [Concomitant]
     Indication: DIABETIC NEUROPATHY
     Dosage: 150 MG, UNKNOWN
     Route: 048
  5. KALIMATE [Concomitant]
     Indication: HYPERKALAEMIA
     Dosage: 5 G, UNKNOWN
     Route: 048
  6. ADALAT CR [Concomitant]
     Indication: PRODUCT USED FOR UNKNOWN INDICATION
     Dosage: 60 MG, UNKNOWN
     Route: 048
  7. DORNER [Concomitant]
     Indication: PERIPHERAL ARTERIAL OCCLUSIVE DISEASE
     Dosage: 40 ?G, UNKNOWN
     Route: 048
  8. BAYASPIRIN [Concomitant]
     Indication: PRODUCT USED FOR UNKNOWN INDICATION
     Dosage: 100 MG, UNKNOWN
     Route: 048
  9. PROTECADIN [Concomitant]
     Indication: GASTRITIS
     Dosage: 10 MG, UNKNOWN
     Route: 048
  10. LENDORMIN [Concomitant]
     Indication: INSOMNIA
     Dosage: 0.125 MG, UNKNOWN
     Route: 048
  11. OPALMON [Concomitant]
     Indication: PERIPHERAL ARTERIAL OCCLUSIVE DISEASE
     Dosage: 30 ?G, UNKNOWN
     Route: 048
  12. BLOPRESS [Concomitant]
     Indication: PRODUCT USED FOR UNKNOWN INDICATION
     Dosage: 12 MG, UNKNOWN
     Route: 048
  13. PURSENNID /00142207/ [Concomitant]
     Indication: CONSTIPATION
     Dosage: 24 MG, UNKNOWN
     Route: 048
  14. EPOGIN [Concomitant]
     Indication: NEPHROGENIC ANAEMIA
     Dosage: 3000 IU, UNKNOWN
     Route: 042
  15. LIRAGLUTIDE [Concomitant]
     Indication: GLUCOSE TOLERANCE IMPAIRED
     Dosage: 0.3 MG, UNKNOWN
     Route: 065
     Dates: start: 20110226, end: 20110308
  16. PROPAFENONE HYDROCHLORIDE [Concomitant]
     Indication: ATRIAL FIBRILLATION
     Dosage: 200 MG, UNKNOWN
     Route: 065
     Dates: start: 20110117
  17. MITIGLINIDE CALCIUM [Concomitant]
     Indication: GLUCOSE TOLERANCE IMPAIRED
     Dosage: 15 MG, UNKNOWN
     Route: 065
     Dates: start: 20110308

REACTIONS (1)
  - Decreased appetite [Recovered/Resolved]
